FAERS Safety Report 10211142 (Version 2)
Quarter: 2014Q2

REPORT INFORMATION
  Report Type: Spontaneous
  Country: JP (occurrence: JP)
  Receive Date: 20140602
  Receipt Date: 20140602
  Transmission Date: 20141212
  Serious: Yes (Hospitalization)
  Sender: FDA-Public Use
  Company Number: JP-BAYER-2014-057587

PATIENT
  Age: 65 Year
  Sex: Female
  Weight: 30 kg

DRUGS (7)
  1. STIVARGA [Suspect]
     Indication: COLON CANCER
     Dosage: 160 MG, QD
     Route: 048
     Dates: start: 20140314, end: 20140328
  2. LYRICA [Concomitant]
     Dosage: DAILY DOSE 150 MG
     Route: 048
     Dates: start: 20140131
  3. PYDOXAL [Concomitant]
     Indication: DRUG TOXICITY PROPHYLAXIS
     Dosage: DAILY DOSE 60 MG
     Route: 048
     Dates: start: 20140131
  4. TS 1 [Concomitant]
     Indication: COLON CANCER
     Dosage: DAILY DOSE 80 MG
     Route: 048
     Dates: start: 20140131, end: 20140227
  5. METHYCOBAL [Concomitant]
     Indication: DRUG TOXICITY PROPHYLAXIS
     Dosage: DAILY DOSE 1500 ?G
     Route: 048
     Dates: start: 20140131
  6. HIRUDOID [Concomitant]
     Indication: DRUG TOXICITY PROPHYLAXIS
     Dosage: UNK
     Route: 061
  7. MYSER [Concomitant]
     Dosage: UNK
     Route: 061

REACTIONS (2)
  - Stevens-Johnson syndrome [Recovering/Resolving]
  - Disseminated intravascular coagulation [Recovered/Resolved]
